FAERS Safety Report 9852305 (Version 1)
Quarter: 2014Q1

REPORT INFORMATION
  Report Type: Spontaneous
  Country: US (occurrence: None)
  Receive Date: 20140128
  Receipt Date: 20140128
  Transmission Date: 20141002
  Serious: No
  Sender: FDA-Public Use
  Company Number: None

PATIENT
  Age: 73 Year
  Sex: Male
  Weight: 125 kg

DRUGS (1)
  1. TUBERCULIN PURIFIED PROTEIN DERIVATIVE [Suspect]
     Indication: IMMUNISATION
     Dosage: 5 UNITS, ONCE, SQ
     Route: 058
     Dates: start: 20140114, end: 20140114

REACTIONS (2)
  - Rash [None]
  - Cellulitis [None]
